FAERS Safety Report 8607958-5 (Version None)
Quarter: 2012Q3

REPORT INFORMATION
  Report Type: 
  Country: None (occurrence: None)
  Receive Date: 20120821
  Receipt Date: 20120815
  Transmission Date: 20120928
  Serious: Yes (Hospitalization)
  Sender: FDA-Public Use
  Company Number: CH-SANOFI-AVENTIS-2012SA047684

PATIENT
  Age: 77 Year
  Sex: Male
  Weight: 58 kg

DRUGS (1)
  1. JEVTANA KIT [Suspect]
     Dosage: DOSAGE REGIMEN- 1 PER 1 TOTAL
     Route: 042
     Dates: start: 20120510, end: 20120510

REACTIONS (3)
  - NEUTROPENIA [None]
  - SYNCOPE [None]
  - DIARRHOEA [None]
